FAERS Safety Report 5946017-7 (Version None)
Quarter: 2008Q4

REPORT INFORMATION
  Report Type: 
  Country: None (occurrence: None)
  Receive Date: 20081106
  Receipt Date: 20081023
  Transmission Date: 20090506
  Serious: Yes (Life-Threatening, Hospitalization)
  Sender: FDA-Public Use
  Company Number: 2008002771

PATIENT
  Age: 72 Year
  Sex: Female

DRUGS (2)
  1. ERLOTIINIB (ERLOTINIB) (TABLET) (ERLOTINIB) [Suspect]
     Indication: LUNG SQUAMOUS CELL CARCINOMA STAGE UNSPECIFIED
     Dosage: 150 MG, QD, ORAL
     Route: 048
     Dates: start: 20080126, end: 20081012
  2. PIRENOXINE (PIRENOXINE) [Concomitant]

REACTIONS (4)
  - MEDIASTINITIS [None]
  - OESOPHAGEAL PERFORATION [None]
  - PNEUMONIA [None]
  - TRACHEO-OESOPHAGEAL FISTULA [None]
